FAERS Safety Report 8735803 (Version 3)
Quarter: 2012Q4

REPORT INFORMATION
  Report Type: Report from Study
  Country: NL (occurrence: NL)
  Receive Date: 20120822
  Receipt Date: 20121019
  Transmission Date: 20130627
  Serious: Yes (Hospitalization)
  Sender: FDA-Public Use
  Company Number: NL-GENZYME-CLOF-1002189

PATIENT
  Age: 67 Year
  Sex: Male
  Weight: 65 kg

DRUGS (11)
  1. EVOLTRA [Suspect]
     Indication: ACUTE LYMPHOCYTIC LEUKAEMIA
     Dosage: 57 mg, qd
     Route: 042
     Dates: start: 20120606
  2. PREDNISOLONE [Suspect]
     Indication: ACUTE LYMPHOCYTIC LEUKAEMIA
     Dosage: 55 mg, bid
     Route: 048
     Dates: start: 20120606
  3. CYTARABINE [Suspect]
     Indication: ACUTE LYMPHOCYTIC LEUKAEMIA
     Dosage: 360 mg, UNK
     Route: 042
     Dates: start: 20120728
  4. ETOPOSIDE [Suspect]
     Indication: ACUTE LYMPHOCYTIC LEUKAEMIA
     Dosage: 212 mg, UNK
     Route: 042
     Dates: start: 20120728
  5. METHOTREXATE [Suspect]
     Indication: ACUTE LYMPHOCYTIC LEUKAEMIA
     Dosage: 12.5 mg, UNK
     Route: 037
     Dates: start: 20120726
  6. METHOTREXATE [Suspect]
     Dosage: 900 mg, UNK
     Route: 042
     Dates: start: 20120731
  7. DEXAMETHASONE [Suspect]
     Indication: ACUTE LYMPHOCYTIC LEUKAEMIA
     Dosage: 4 mg, UNK
     Route: 037
     Dates: start: 20120726
  8. LEUCOVORIN [Suspect]
     Indication: ACUTE LYMPHOCYTIC LEUKAEMIA
     Dosage: 60 mg, UNK
     Route: 065
     Dates: start: 20120801
  9. FLUCONAZOL [Concomitant]
     Indication: PROPHYLAXIS
     Dosage: 400 mg, qd
     Route: 048
     Dates: start: 20120526
  10. ESOMEPRAZOLE [Concomitant]
     Indication: DYSPEPSIA
     Dosage: 40 mg, UNK
     Route: 048
     Dates: start: 20120528
  11. OXAZEPAM [Concomitant]
     Indication: NEUROSIS
     Dosage: 10 mg, UNK
     Route: 048
     Dates: start: 20120701

REACTIONS (3)
  - Disorientation [Unknown]
  - Confusional state [Recovered/Resolved]
  - Hepatic enzyme abnormal [Unknown]
